FAERS Safety Report 4539324-6 (Version None)
Quarter: 2004Q4

REPORT INFORMATION
  Report Type: 
  Country: None (occurrence: None)
  Receive Date: 20041227
  Receipt Date: 20041227
  Transmission Date: 20050328
  Serious: Yes (Other)
  Sender: FDA-Public Use
  Company Number: None

PATIENT
  Age: 60 Year
  Sex: Female
  Weight: 63.5036 kg

DRUGS (1)
  1. NAPROXEN [Suspect]
     Indication: ARTHRALGIA
     Dosage: 220MG BID   ORAL
     Route: 048
     Dates: start: 20040110, end: 20041220

REACTIONS (5)
  - ERYTHEMA [None]
  - EXCORIATION [None]
  - SKIN LESION [None]
  - SKIN ULCER [None]
  - VEIN PAIN [None]
